FAERS Safety Report 16057542 (Version 1)
Quarter: 2019Q1

REPORT INFORMATION
  Report Type: Spontaneous
  Country: US (occurrence: US)
  Receive Date: 20190311
  Receipt Date: 20190311
  Transmission Date: 20190418
  Serious: Yes (Hospitalization, Other)
  Sender: FDA-Public Use
  Company Number: US-SA-2019SA062075

PATIENT
  Age: 20 Year
  Sex: Male
  Weight: 70 kg

DRUGS (4)
  1. AMBIEN [Suspect]
     Active Substance: ZOLPIDEM TARTRATE
     Indication: INSOMNIA
  2. PARACETAMOL [Suspect]
     Active Substance: ACETAMINOPHEN
     Indication: PANIC DISORDER
  3. CELECOXIB. [Suspect]
     Active Substance: CELECOXIB
     Indication: ANTIDEPRESSANT THERAPY
     Dosage: UNK
  4. PAROXETINE HYDROCHLORIDE. [Suspect]
     Active Substance: PAROXETINE HYDROCHLORIDE
     Indication: ANTIDEPRESSANT THERAPY
     Dosage: UNK

REACTIONS (4)
  - Overdose [Unknown]
  - Suicidal behaviour [Unknown]
  - Fatigue [Unknown]
  - Nausea [Unknown]

NARRATIVE: CASE EVENT DATE: 20180923
